FAERS Safety Report 23524656 (Version 3)
Quarter: 2024Q2

REPORT INFORMATION
  Report Type: Spontaneous
  Country: US (occurrence: US)
  Receive Date: 20240215
  Receipt Date: 20240624
  Transmission Date: 20240716
  Serious: Yes (Other)
  Sender: FDA-Public Use
  Company Number: US-BEH-2024168232

PATIENT
  Age: 22 Year
  Sex: Male

DRUGS (1)
  1. HUMATE-P [Suspect]
     Active Substance: HUMAN COAGULATION FACTOR VIII/VON WILLEBRAND FACTOR COMPLEX
     Indication: Von Willebrand^s disease
     Dosage: 2000 RCOF UNITS, BIW (2 TO 3 TIMES WEEKLY)
     Route: 042
     Dates: start: 201706

REACTIONS (6)
  - Haemorrhage [Unknown]
  - Limb injury [Unknown]
  - Contusion [Unknown]
  - Spontaneous haemorrhage [Unknown]
  - Traumatic haemorrhage [Recovered/Resolved]
  - Injury [Unknown]

NARRATIVE: CASE EVENT DATE: 20240101
